FAERS Safety Report 25241728 (Version 4)
Quarter: 2025Q2

REPORT INFORMATION
  Report Type: Spontaneous
  Country: DE (occurrence: DE)
  Receive Date: 20250426
  Receipt Date: 20250512
  Transmission Date: 20250716
  Serious: Yes (Hospitalization, Other)
  Sender: AUROBINDO
  Company Number: DE-MLMSERVICE-20250407-PI470487-00030-1

PATIENT
  Age: 10 Year
  Sex: Female

DRUGS (9)
  1. ASPIRIN [Suspect]
     Active Substance: ASPIRIN
     Indication: Migraine
     Route: 065
  2. IBUPROFEN [Suspect]
     Active Substance: IBUPROFEN
     Indication: Migraine
     Route: 065
  3. ACETAMINOPHEN [Suspect]
     Active Substance: ACETAMINOPHEN
     Indication: Migraine
     Route: 065
  4. SUMATRIPTAN [Suspect]
     Active Substance: SUMATRIPTAN
     Indication: Migraine
     Route: 045
  5. ACETAMINOPHEN\ASPIRIN [Suspect]
     Active Substance: ACETAMINOPHEN\ASPIRIN
     Indication: Headache
     Route: 065
  6. ACETAMINOPHEN\ASPIRIN [Suspect]
     Active Substance: ACETAMINOPHEN\ASPIRIN
     Indication: Migraine
  7. FLUTICASONE [Concomitant]
     Active Substance: FLUTICASONE
     Indication: Product used for unknown indication
     Dosage: 250 MICROGRAM, ONCE A DAY
     Route: 065
  8. Formoterol al [Concomitant]
     Indication: Product used for unknown indication
     Dosage: 10 MICROGRAM, ONCE A DAY
     Route: 065
  9. ASPIRIN [Concomitant]
     Active Substance: ASPIRIN
     Indication: Product used for unknown indication
     Route: 065

REACTIONS (8)
  - NSAID exacerbated respiratory disease [Recovered/Resolved]
  - Drug hypersensitivity [Recovered/Resolved]
  - Chronic rhinosinusitis with nasal polyps [Recovered/Resolved]
  - Asthma [Recovered/Resolved]
  - Contraindicated product administered [Unknown]
  - Obstructive airways disorder [Recovered/Resolved]
  - Dyspnoea [Unknown]
  - Drug tolerance [Unknown]

NARRATIVE: CASE EVENT DATE: 20200901
